FAERS Safety Report 15888241 (Version 1)
Quarter: 2019Q1

REPORT INFORMATION
  Report Type: Spontaneous
  Country: US (occurrence: US)
  Receive Date: 20190108
  Receipt Date: 20190108
  Transmission Date: 20190417
  Serious: Yes (Death, Hospitalization)
  Sender: FDA-Public Use
  Company Number: None

PATIENT
  Age: 85 Year
  Sex: Male
  Weight: 65.32 kg

DRUGS (6)
  1. BUMETANIDE BUMEX 6MG [Concomitant]
  2. SYNTHROID [Concomitant]
     Active Substance: LEVOTHYROXINE SODIUM
  3. COREG [Concomitant]
     Active Substance: CARVEDILOL
  4. TRIAMCINOLONE OINTMENT [Concomitant]
  5. ASPIRIN 81MG [Concomitant]
     Active Substance: ASPIRIN
  6. ENTRESTO [Suspect]
     Active Substance: SACUBITRIL\VALSARTAN
     Indication: CARDIAC FAILURE
     Dosage: ?          OTHER STRENGTH:24MG  26MG;QUANTITY:2 DF DOSAGE FORM;?
     Route: 048
     Dates: start: 20161025, end: 20180719

REACTIONS (7)
  - Cough [None]
  - Fluid retention [None]
  - Blood creatine [None]
  - Panic disorder [None]
  - Renal disorder [None]
  - Dizziness [None]
  - Dyspnoea [None]
